FAERS Safety Report 7672152-1 (Version None)
Quarter: 2011Q3

REPORT INFORMATION
  Report Type: 
  Country: None (occurrence: None)
  Receive Date: 20110809
  Receipt Date: 20110802
  Transmission Date: 20111222
  Serious: Yes (Other)
  Sender: FDA-Public Use
  Company Number: DK-PFIZER INC-2011176973

PATIENT
  Age: 53 Year
  Sex: Female
  Weight: 70 kg

DRUGS (1)
  1. PROVERA [Suspect]
     Indication: MENSTRUATION IRREGULAR
     Dosage: 5 MG, UNK
     Route: 048
     Dates: start: 20110504, end: 20110505

REACTIONS (3)
  - ANXIETY [None]
  - EPISTAXIS [None]
  - DIPLOPIA [None]
